FAERS Safety Report 4517774-1 (Version None)
Quarter: 2004Q4

REPORT INFORMATION
  Report Type: 
  Country: None (occurrence: None)
  Receive Date: 20041130
  Receipt Date: 20041117
  Transmission Date: 20050328
  Serious: Yes (Hospitalization)
  Sender: FDA-Public Use
  Company Number: 2004081572

PATIENT
  Sex: Male

DRUGS (2)
  1. ZIPRASIDONE (CAPS) (ZIPRASIDONE) [Suspect]
     Indication: PSYCHOTIC DISORDER
     Dosage: ORAL
     Route: 048
     Dates: start: 20020101
  2. BROMAZEPAM [Suspect]
     Indication: ANXIETY
     Dosage: ORAL
     Route: 048

REACTIONS (9)
  - ANXIETY [None]
  - COMA [None]
  - EUPHORIC MOOD [None]
  - INTENTIONAL OVERDOSE [None]
  - MEDICAL DEVICE COMPLICATION [None]
  - MEDICATION ERROR [None]
  - NOSOCOMIAL INFECTION [None]
  - PNEUMONIA [None]
  - RESPIRATORY DISORDER [None]
